FAERS Safety Report 8051778-X (Version None)
Quarter: 2012Q1

REPORT INFORMATION
  Report Type: 
  Country: None (occurrence: None)
  Receive Date: 20120118
  Receipt Date: 20120112
  Transmission Date: 20120608
  Serious: No
  Sender: FDA-Public Use
  Company Number: US-BIOGENIDEC-2012BI001606

PATIENT
  Age: 48 Year
  Sex: Female

DRUGS (2)
  1. AMBIEN [Concomitant]
     Indication: INSOMNIA
  2. TYSABRI [Suspect]
     Indication: MULTIPLE SCLEROSIS
     Route: 042
     Dates: start: 20110907

REACTIONS (1)
  - NASOPHARYNGITIS [None]
